FAERS Safety Report 5814647-9 (Version None)
Quarter: 2008Q3

REPORT INFORMATION
  Report Type: 
  Country: None (occurrence: None)
  Receive Date: 20080718
  Receipt Date: 20070808
  Transmission Date: 20090109
  Serious: No
  Sender: FDA-Public Use
  Company Number: US-KINGPHARMUSA00001-K200700101

PATIENT

DRUGS (15)
  1. LEVOXYL [Suspect]
     Indication: THYROIDECTOMY
     Dosage: UNK, UNK
     Dates: start: 20060101, end: 20070101
  2. LEVOXYL [Suspect]
     Dosage: 125 MCG ALTERNATING WITH 137 MCG, QOD
     Dates: start: 20070201
  3. PLAVIX [Concomitant]
     Indication: ANTIPLATELET THERAPY
     Dosage: 75 MG, QD
     Route: 048
  4. ATENOLOL [Concomitant]
     Indication: HYPERTENSION
     Dosage: 50 MG, QD
     Route: 048
  5. FENTANYL                           /00174602/ [Concomitant]
     Indication: PAIN IN EXTREMITY
     Dosage: 25 MG, Q3D
     Route: 062
  6. AVANDARYL [Concomitant]
     Indication: DIABETES MELLITUS
     Dosage: 4.4 MG, QD
     Route: 048
  7. METFORMIN HCL [Concomitant]
     Indication: DIABETES MELLITUS
     Dosage: 850 MG, QD
     Route: 048
  8. MICARDIS [Concomitant]
     Indication: HYPERTENSION
     Dosage: 80 MG, QD
     Route: 048
  9. FUROSEMIDE [Concomitant]
     Indication: DIURETIC THERAPY
     Dosage: 20 MG, QD
     Route: 048
  10. ASPIRIN [Concomitant]
     Dosage: 164 MG, QD
     Route: 048
  11. NORVASC [Concomitant]
     Dosage: 10 MG, QD
     Route: 048
  12. PROTONIX                           /01263201/ [Concomitant]
     Indication: GASTROOESOPHAGEAL REFLUX DISEASE
     Dosage: 40 MG, QD
     Route: 048
  13. ALPRAZOLAM [Concomitant]
     Indication: ANXIETY
     Dosage: .5 MG, QD
     Route: 048
  14. LEVEMIR [Concomitant]
     Indication: DIABETES MELLITUS
     Dosage: 20 MG, QD
  15. LEXAPRO [Concomitant]
     Indication: DEPRESSION
     Dosage: 10 MG, QHS
     Route: 048

REACTIONS (1)
  - BLOOD THYROID STIMULATING HORMONE DECREASED [None]
